FAERS Safety Report 9466821 (Version 1)
Quarter: 2013Q3

REPORT INFORMATION
  Report Type: Spontaneous
  Country: US (occurrence: None)
  Receive Date: 20130816
  Receipt Date: 20130816
  Transmission Date: 20140515
  Serious: Yes (Death, Hospitalization)
  Sender: FDA-Public Use
  Company Number: HYP201307-000035

PATIENT
  Age: 64 Year
  Sex: Male
  Weight: 77.1 kg

DRUGS (4)
  1. RAVICTI [Suspect]
     Indication: AMINO ACID METABOLISM DISORDER
     Route: 048
     Dates: start: 20130705, end: 20130711
  2. L-CITRULLINE [Concomitant]
  3. PRAVACHOL (PRAVASTATIN) [Concomitant]
  4. MULTIVITAMIN [Concomitant]

REACTIONS (9)
  - Hyperammonaemia [None]
  - Abdominal pain [None]
  - Status epilepticus [None]
  - Brain oedema [None]
  - Haemodialysis [None]
  - Grand mal convulsion [None]
  - Partial seizures [None]
  - Brain herniation [None]
  - Mental status changes [None]
